FAERS Safety Report 7874253-1 (Version None)
Quarter: 2011Q4

REPORT INFORMATION
  Report Type: 
  Country: None (occurrence: None)
  Receive Date: 20111030
  Receipt Date: 20110517
  Transmission Date: 20120403
  Serious: No
  Sender: FDA-Public Use
  Company Number: US-AMGEN-USASP2011025473

PATIENT
  Age: 50 Year
  Sex: Female
  Weight: 139.23 kg

DRUGS (21)
  1. TRAMADOL HCL [Concomitant]
     Dosage: 50 MG, UNK
  2. FOLIC ACID [Concomitant]
     Dosage: 1 MG, UNK
  3. VITAMIN D [Concomitant]
     Dosage: 400 IU, UNK
  4. MULTI-VITAMINS [Concomitant]
     Dosage: UNK
  5. SOMA CMPD [Concomitant]
     Dosage: UNK
  6. METHOTREXATE [Concomitant]
     Dosage: 2.5 MG, UNK
  7. ATENOLOL [Concomitant]
     Dosage: 25 MG, UNK
  8. RANITIDINE [Concomitant]
     Dosage: 75 MG, UNK
  9. VITAMIN B COMPLEX W/ C [Concomitant]
     Dosage: UNK
  10. POTASSIUM [Concomitant]
     Dosage: 25 MEQ, UNK
  11. BENADRYL ALLERGY                   /00000402/ [Concomitant]
     Dosage: 25 MG, UNK
  12. DIAZEPAM [Concomitant]
     Dosage: 2 MG, UNK
  13. GLIPIZIDE [Concomitant]
     Dosage: 5 MG, UNK
  14. TEMAZEPAM [Concomitant]
     Dosage: 30 MG, UNK
  15. CITRACAL + D                       /01438101/ [Concomitant]
     Dosage: UNK
  16. LASIX [Concomitant]
     Dosage: 20 MG, UNK
  17. VICODIN [Concomitant]
     Dosage: UNK
  18. VALIUM [Concomitant]
     Dosage: 2 MG, UNK
  19. ENBREL [Suspect]
     Indication: PRODUCT USED FOR UNKNOWN INDICATION
     Dosage: 50 MG, QWK
  20. METOCLOPRAMIDE                     /00041902/ [Concomitant]
     Dosage: 5 MG, UNK
  21. MAGNESIUM OXIDE [Concomitant]
     Dosage: 250 MG, UNK

REACTIONS (5)
  - OEDEMA PERIPHERAL [None]
  - DRUG INEFFECTIVE [None]
  - PAIN [None]
  - DYSPNOEA [None]
  - MUSCLE SPASMS [None]
